FAERS Safety Report 8300377-0 (Version None)
Quarter: 2012Q2

REPORT INFORMATION
  Report Type: 
  Country: None (occurrence: None)
  Receive Date: 20120417
  Receipt Date: 20120404
  Transmission Date: 20120825
  Serious: Yes (Death, Life-Threatening, Hospitalization, Disabling, Other)
  Sender: FDA-Public Use
  Company Number: 2008AL006445

PATIENT
  Sex: Male
  Weight: 73.9363 kg

DRUGS (73)
  1. TORSEMIDE [Concomitant]
  2. SERTRALINE HYDROCHLORIDE [Concomitant]
  3. POTASSIUM CHLORIDE [Concomitant]
  4. ALPRAZOLAM [Concomitant]
  5. SOTALOL HCL [Concomitant]
  6. TYLENOL (CAPLET) [Concomitant]
  7. AMBIEN [Concomitant]
  8. LEVOTHYROXINE SODIUM [Concomitant]
  9. FEXOFENADINE [Concomitant]
  10. TERAZOSIN HCL [Concomitant]
  11. VITAMIN B-12 [Concomitant]
  12. PLAVIX [Concomitant]
  13. ISOSORB [Concomitant]
  14. FENTANYL [Concomitant]
  15. AVELOX [Concomitant]
  16. MILRINONE [Concomitant]
  17. REMERON [Concomitant]
  18. AMLODIPINE [Concomitant]
  19. MULTI-VITAMIN [Concomitant]
  20. ALLEGRA [Concomitant]
  21. LORTAB [Concomitant]
  22. MAGNESIUM OXIDE [Concomitant]
  23. NITROGLYCERIN [Concomitant]
  24. INSULIN [Concomitant]
  25. COREG [Concomitant]
  26. CARVASTATIN [Concomitant]
  27. BALSAM PERU/CASTOR OIL/TRYPSIN TOPICAL [Concomitant]
  28. DARVOCET [Concomitant]
  29. PROTONIX [Concomitant]
  30. PREDNISOLONE [Concomitant]
  31. NITROGLYCERIN [Concomitant]
  32. XANAX [Concomitant]
  33. ZOLPIDEM [Concomitant]
  34. MIRTAZAPINE [Concomitant]
  35. LORATADINE [Concomitant]
  36. IMDUR [Concomitant]
  37. FERROUS SULFATE TAB [Concomitant]
  38. ZANTAC [Concomitant]
  39. CHLOROTHIAZ [Concomitant]
  40. CARVEDILOL [Concomitant]
  41. QUINAPRIL [Concomitant]
  42. FUROSEMIDE [Concomitant]
  43. PREDNISONE [Concomitant]
  44. ZOLOFT [Concomitant]
  45. ESOMEPRAZOLE MAGNESIUM [Concomitant]
  46. ASPIRIN [Concomitant]
  47. CARVEDILOL [Concomitant]
  48. VANCOMYCIN [Concomitant]
  49. ALLOPURINOL [Concomitant]
  50. SYNTHROID [Concomitant]
  51. AZITHROMYCIN [Concomitant]
  52. DIGOXIN [Suspect]
     Dosage: 0.125 MG;QD;PO
     Route: 048
     Dates: start: 20050508, end: 20080424
  53. AMIODARONE HCL [Concomitant]
  54. METOLAZONE [Concomitant]
  55. LIPITOR [Concomitant]
  56. COUMADIN [Concomitant]
  57. ALTACE [Concomitant]
  58. LOVENOX [Concomitant]
  59. SPIRONOLACTONE [Concomitant]
  60. MICRO-K [Concomitant]
  61. ONDANSETRON [Concomitant]
  62. COLCHICINE [Concomitant]
  63. ROCEPHIN [Concomitant]
  64. AMBIEN [Concomitant]
  65. QUINAPRIL [Concomitant]
  66. SODIUM CHLORIDE [Concomitant]
  67. XENADERM [Concomitant]
  68. NITROGLYCERIN [Concomitant]
  69. LASIX [Concomitant]
  70. TOPROL-XL [Concomitant]
  71. LIDOCAINE [Concomitant]
  72. MORPHINE [Concomitant]
  73. NEXIUM [Concomitant]

REACTIONS (52)
  - HAEMATEMESIS [None]
  - SYNCOPE [None]
  - DYSPNOEA EXERTIONAL [None]
  - RHINITIS SEASONAL [None]
  - VENTRICULAR TACHYCARDIA [None]
  - ORTHOPNOEA [None]
  - PERIPHERAL COLDNESS [None]
  - APPENDIX DISORDER [None]
  - BACTERAEMIA [None]
  - TOXICITY TO VARIOUS AGENTS [None]
  - ANXIETY [None]
  - OCCULT BLOOD POSITIVE [None]
  - IRON DEFICIENCY ANAEMIA [None]
  - TRICUSPID VALVE INCOMPETENCE [None]
  - HYPONATRAEMIA [None]
  - ATRIAL FIBRILLATION [None]
  - POOR PERIPHERAL CIRCULATION [None]
  - CAROTID ARTERIOSCLEROSIS [None]
  - FLUID OVERLOAD [None]
  - RENAL FAILURE ACUTE [None]
  - MYALGIA [None]
  - PRODUCTIVE COUGH [None]
  - PYREXIA [None]
  - TACHYPNOEA [None]
  - HYPOTENSION [None]
  - MAJOR DEPRESSION [None]
  - RESPIRATORY FAILURE [None]
  - FALL [None]
  - APPENDICITIS [None]
  - CHOLELITHIASIS [None]
  - MALAISE [None]
  - CREPITATIONS [None]
  - ESSENTIAL HYPERTENSION [None]
  - CARDIAC VALVE DISEASE [None]
  - MITRAL VALVE INCOMPETENCE [None]
  - EXTRASYSTOLES [None]
  - FEMORAL NECK FRACTURE [None]
  - TACHYCARDIA [None]
  - DIZZINESS [None]
  - MUSCULOSKELETAL CHEST PAIN [None]
  - BRADYCARDIA [None]
  - BILE DUCT STONE [None]
  - ARTHRALGIA [None]
  - HYPERLIPIDAEMIA [None]
  - FATIGUE [None]
  - ASTHENIA [None]
  - PNEUMONIA STAPHYLOCOCCAL [None]
  - SLEEP DISORDER [None]
  - BENIGN PROSTATIC HYPERPLASIA [None]
  - NAUSEA [None]
  - CHRONIC OBSTRUCTIVE PULMONARY DISEASE [None]
  - MYOCARDIAL INFARCTION [None]
